FAERS Safety Report 14735716 (Version 1)
Quarter: 2018Q2

REPORT INFORMATION
  Report Type: Spontaneous
  Country: US (occurrence: US)
  Receive Date: 20180403
  Receipt Date: 20180403
  Transmission Date: 20180711
  Serious: Yes (Hospitalization)
  Sender: FDA-Public Use
  Company Number: None

PATIENT
  Age: 68 Year
  Sex: Female

DRUGS (36)
  1. COLACE [Concomitant]
     Active Substance: DOCUSATE SODIUM
  2. GAS RELIEF [Concomitant]
     Active Substance: DIMETHICONE
  3. OXYCODONE [Concomitant]
     Active Substance: OXYCODONE
  4. DOXYCYCL HYC [Concomitant]
  5. ACIPHEX [Concomitant]
     Active Substance: RABEPRAZOLE SODIUM
  6. GLUCOSAMINE [Concomitant]
     Active Substance: GLUCOSAMINE
  7. FEXOFENADINE [Concomitant]
     Active Substance: FEXOFENADINE\FEXOFENADINE HYDROCHLORIDE
  8. DILAUDID [Concomitant]
     Active Substance: HYDROMORPHONE HYDROCHLORIDE
  9. CYCLOBENZAPR [Concomitant]
     Active Substance: CYCLOBENZAPRINE
  10. PREVIDENT [Concomitant]
     Active Substance: SODIUM FLUORIDE
  11. COMBIPATCH [Concomitant]
     Active Substance: ESTRADIOL\NORETHINDRONE ACETATE
  12. VITAMIN E [Concomitant]
     Active Substance: .ALPHA.-TOCOPHEROL
  13. TYLENOL PM [Concomitant]
     Active Substance: ACETAMINOPHEN\DIPHENHYDRAMINE
  14. ONDANSETRON [Concomitant]
     Active Substance: ONDANSETRON
  15. VITAMIN D [Concomitant]
     Active Substance: CHOLECALCIFEROL
  16. DIAZEPAM. [Concomitant]
     Active Substance: DIAZEPAM
  17. RA CALCIUM [Concomitant]
  18. VITAMIN C [Concomitant]
     Active Substance: ASCORBIC ACID
  19. LIDODERM [Concomitant]
     Active Substance: LIDOCAINE
  20. TRAMADOL HCL [Concomitant]
     Active Substance: TRAMADOL HYDROCHLORIDE
  21. FENOFIBRATE. [Concomitant]
     Active Substance: FENOFIBRATE
  22. ESTRADIOL. [Concomitant]
     Active Substance: ESTRADIOL
  23. METHLYPRED [Concomitant]
  24. ALBUTEROL. [Concomitant]
     Active Substance: ALBUTEROL
  25. FORADIL [Concomitant]
     Active Substance: FORMOTEROL FUMARATE
  26. ASPIRIN. [Concomitant]
     Active Substance: ASPIRIN
  27. SENNA [Concomitant]
     Active Substance: SENNA LEAF\SENNOSIDES\SENNOSIDES A AND B
  28. MI-ACID GAS [Concomitant]
  29. FISH OIL [Concomitant]
     Active Substance: FISH OIL
  30. MIRTAZAPINE. [Concomitant]
     Active Substance: MIRTAZAPINE
  31. VENTOLIN [Concomitant]
     Active Substance: ALBUTEROL SULFATE
  32. GLATIRAMER 40MG/ML PFS MYLAN [Suspect]
     Active Substance: GLATIRAMER
     Indication: MULTIPLE SCLEROSIS
     Route: 058
     Dates: start: 20171103
  33. GABAPENTIN. [Concomitant]
     Active Substance: GABAPENTIN
  34. TRICOR [Concomitant]
     Active Substance: FENOFIBRATE
  35. OMEPRAZOLE. [Concomitant]
     Active Substance: OMEPRAZOLE
  36. MELATONIN [Concomitant]
     Active Substance: MELATONIN

REACTIONS (1)
  - General physical health deterioration [None]

NARRATIVE: CASE EVENT DATE: 20180401
